FAERS Safety Report 20303346 (Version 1)
Quarter: 2022Q1

REPORT INFORMATION
  Report Type: Spontaneous
  Country: CA (occurrence: CA)
  Receive Date: 20220106
  Receipt Date: 20220106
  Transmission Date: 20220423
  Serious: Yes (Other)
  Sender: FDA-Public Use
  Company Number: None

PATIENT
  Age: 69 Year
  Sex: Female
  Weight: 77 kg

DRUGS (13)
  1. METHOTREXATE [Suspect]
     Active Substance: METHOTREXATE
     Indication: Product used for unknown indication
     Route: 058
  2. CYCLOPHOSPHAMIDE [Suspect]
     Active Substance: CYCLOPHOSPHAMIDE
     Indication: Product used for unknown indication
     Route: 042
  3. ALVESCO [Concomitant]
     Active Substance: CICLESONIDE
     Indication: Asthma
     Dosage: 2 EVERY 1 DAYS, AEROSOL METERED DOSE
     Route: 055
  4. BENADRYL [Concomitant]
     Active Substance: DIPHENHYDRAMINE HYDROCHLORIDE
     Indication: Hypersensitivity
  5. BETAMETHASONE [Concomitant]
     Active Substance: BETAMETHASONE
     Indication: Eczema
     Dosage: AS REQUIRED
  6. EBASTINE [Concomitant]
     Active Substance: EBASTINE
     Indication: Hypersensitivity
  7. HYDROCORTISONE [Concomitant]
     Active Substance: HYDROCORTISONE
     Indication: Rosacea
     Dosage: AS REQUIRED
  8. LEUCOVORIN [Concomitant]
     Active Substance: LEUCOVORIN
     Indication: Product used for unknown indication
  9. PANTOPRAZOLE [Concomitant]
     Active Substance: PANTOPRAZOLE
     Indication: Prophylaxis
     Dosage: 1 EVERY 1 DAYS
  10. PREDNISONE [Concomitant]
     Active Substance: PREDNISONE
     Indication: Vasculitis
  11. SEPTRA [Concomitant]
     Active Substance: SULFAMETHOXAZOLE\TRIMETHOPRIM
     Indication: Prophylaxis
     Dosage: 1 EVERY 1 DAYS
  12. VENTOLIN [Concomitant]
     Active Substance: ALBUTEROL SULFATE
     Indication: Asthma
     Dosage: AS REQUIRED
     Route: 055
  13. VITAMIN D [Concomitant]
     Active Substance: VITAMIN D NOS
     Indication: Bone density abnormal
     Dosage: 1 EVERY 1 DAYS

REACTIONS (48)
  - Abdominal distension [Unknown]
  - Abdominal pain upper [Unknown]
  - Alopecia [Unknown]
  - Aphasia [Unknown]
  - Asthma [Unknown]
  - Blindness [Unknown]
  - Cold sweat [Unknown]
  - Condition aggravated [Unknown]
  - Constipation [Unknown]
  - Contraindication to medical treatment [Unknown]
  - Contusion [Unknown]
  - Cough [Unknown]
  - Diarrhoea [Unknown]
  - Diplopia [Unknown]
  - Disturbance in attention [Unknown]
  - Drug hypersensitivity [Unknown]
  - Drug intolerance [Unknown]
  - Dyspnoea [Unknown]
  - Eczema [Unknown]
  - Epistaxis [Unknown]
  - Eye pain [Unknown]
  - Fatigue [Unknown]
  - Feeling abnormal [Unknown]
  - Gastrointestinal disorder [Unknown]
  - Headache [Unknown]
  - Jaundice [Unknown]
  - Loss of consciousness [Unknown]
  - Mood swings [Unknown]
  - Mouth ulceration [Unknown]
  - Muscle spasms [Unknown]
  - Musculoskeletal stiffness [Unknown]
  - Nausea [Unknown]
  - Night sweats [Unknown]
  - Pain [Unknown]
  - Poor quality sleep [Unknown]
  - Pruritus [Unknown]
  - Pyrexia [Unknown]
  - Rash [Unknown]
  - Renal pain [Unknown]
  - Rhinorrhoea [Unknown]
  - Rosacea [Unknown]
  - Sneezing [Unknown]
  - Somnolence [Unknown]
  - Swelling [Unknown]
  - Treatment failure [Unknown]
  - Urticaria [Unknown]
  - Vision blurred [Unknown]
  - Vitreous floaters [Unknown]
